FAERS Safety Report 5103199-7 (Version None)
Quarter: 2006Q3

REPORT INFORMATION
  Report Type: 
  Country: None (occurrence: None)
  Receive Date: 20060912
  Receipt Date: 20060912
  Transmission Date: 20061208
  Serious: Yes (Hospitalization)
  Sender: FDA-Public Use
  Company Number: None

PATIENT
  Sex: Male
  Weight: 60 kg

DRUGS (5)
  1. VANCOMYCIN [Suspect]
     Indication: STAPHYLOCOCCAL INFECTION
     Dosage: 1 GM IV Q 12 H
     Route: 042
     Dates: start: 20060814, end: 20060830
  2. VANCOMYCIN [Suspect]
     Indication: WOUND
     Dosage: 1 GM IV Q 12 H
     Route: 042
     Dates: start: 20060814, end: 20060830
  3. EZETMIDE [Concomitant]
  4. ESOMEPRAZOLE MAGNESIUM [Concomitant]
  5. TRAMADOL HCL [Concomitant]

REACTIONS (1)
  - FEBRILE NEUTROPENIA [None]
